FAERS Safety Report 5446888-7 (Version None)
Quarter: 2007Q3

REPORT INFORMATION
  Report Type: 
  Country: None (occurrence: None)
  Receive Date: 20070907
  Receipt Date: 20070828
  Transmission Date: 20080115
  Serious: Yes (Other)
  Sender: FDA-Public Use
  Company Number: US-PFIZER INC-2007073106

PATIENT
  Sex: Female
  Weight: 134 kg

DRUGS (2)
  1. CHANTIX [Suspect]
     Indication: SMOKING CESSATION THERAPY
     Route: 048
  2. ATENOLOL [Concomitant]

REACTIONS (14)
  - ANGER [None]
  - ANXIETY [None]
  - BLADDER DISORDER [None]
  - BOWEL MOVEMENT IRREGULARITY [None]
  - CRYING [None]
  - DEPRESSION [None]
  - INSOMNIA [None]
  - NAUSEA [None]
  - NERVOUSNESS [None]
  - PANIC REACTION [None]
  - PERSONALITY CHANGE [None]
  - POLLAKIURIA [None]
  - PYREXIA [None]
  - STOMACH DISCOMFORT [None]
